FAERS Safety Report 17260759 (Version 4)
Quarter: 2020Q1

REPORT INFORMATION
  Report Type: Report from Study
  Country: BR (occurrence: BR)
  Receive Date: 20200113
  Receipt Date: 20200211
  Transmission Date: 20200409
  Serious: Yes (Other)
  Sender: FDA-Public Use
  Company Number: BR-ROCHE-2517856

PATIENT
  Age: 75 Year
  Sex: Male

DRUGS (17)
  1. PANTOPRAZOLE [Concomitant]
     Active Substance: PANTOPRAZOLE
     Indication: PROPHYLAXIS
     Route: 048
     Dates: start: 20190907
  2. MORPHINE [Concomitant]
     Active Substance: MORPHINE
     Indication: CHEST PAIN
     Route: 048
     Dates: start: 20190830, end: 20190906
  3. MORPHINE [Concomitant]
     Active Substance: MORPHINE
     Route: 048
     Dates: start: 20190911
  4. VALERIAN [Concomitant]
     Active Substance: VALERIAN
     Indication: ANXIETY
     Route: 048
     Dates: start: 20191010, end: 20191011
  5. CARBOPLATIN. [Suspect]
     Active Substance: CARBOPLATIN
     Indication: MALIGNANT NEOPLASM OF UNKNOWN PRIMARY SITE
     Dosage: DATE OF LAST DOSE OF CARBOPLATIN PRIOR TO SAE/AESI ONSET: 12/DEC/2019.?DOSE OF LAST CARBOPLATIN ADMI
     Route: 042
     Dates: start: 20191212
  6. LACTULOSE. [Concomitant]
     Active Substance: LACTULOSE
     Indication: CONSTIPATION
     Route: 048
     Dates: start: 20190823
  7. DIPYRONE [Concomitant]
     Active Substance: DIPYRONE
     Indication: CHEST PAIN
     Route: 048
     Dates: start: 20190723
  8. BUDESONIDE;FORMOTEROL [Concomitant]
     Active Substance: BUDESONIDE\FORMOTEROL
     Indication: EMPHYSEMA
     Dosage: 24/800 MCG, ?12/400 UG. (INHALED).
     Route: 065
  9. LACTULOSE. [Concomitant]
     Active Substance: LACTULOSE
     Route: 048
     Dates: start: 20191120
  10. MORPHINE [Concomitant]
     Active Substance: MORPHINE
     Route: 048
     Dates: start: 20190907, end: 20190910
  11. BROMOPRIDE [Concomitant]
     Active Substance: BROMOPRIDE
     Indication: NAUSEA
     Route: 048
     Dates: start: 20190816
  12. PACLITAXEL. [Suspect]
     Active Substance: PACLITAXEL
     Indication: MALIGNANT NEOPLASM OF UNKNOWN PRIMARY SITE
     Dosage: DATE OF FIRST DOSE OF PACLITAXEL ADMINISTERED PRIOR TO SAE/AESI ONSET: 12/DEC/2019.?DOSE OF LAST PAC
     Route: 042
     Dates: start: 20191212
  13. HYDROXYZINE [Concomitant]
     Active Substance: HYDROXYZINE HYDROCHLORIDE
     Indication: RASH
     Route: 048
     Dates: start: 20190827
  14. ATEZOLIZUMAB. [Suspect]
     Active Substance: ATEZOLIZUMAB
     Indication: MALIGNANT NEOPLASM OF UNKNOWN PRIMARY SITE
     Dosage: DATE OF LAST DOSE OF ATEZOLIZUMAB PRIOR TO SAE/AESI ONSET: 12/DEC/2019?DOSE OF LAST ATEZOLIZUMAB ADM
     Route: 042
     Dates: start: 20191212
  15. BUPROPION. [Concomitant]
     Active Substance: BUPROPION
     Route: 048
  16. UMECLIDINIUM [Concomitant]
     Active Substance: UMECLIDINIUM BROMIDE
     Indication: EMPHYSEMA
     Dosage: INHALED
     Route: 065
  17. VALERIAN [Concomitant]
     Active Substance: VALERIAN
     Route: 048
     Dates: start: 20191211

REACTIONS (1)
  - Atrial fibrillation [Recovered/Resolved]

NARRATIVE: CASE EVENT DATE: 20200106
